FAERS Safety Report 4375318-1 (Version None)
Quarter: 2004Q2

REPORT INFORMATION
  Report Type: 
  Country: None (occurrence: None)
  Receive Date: 20040608
  Receipt Date: 20040527
  Transmission Date: 20050107
  Serious: Yes (Other)
  Sender: FDA-Public Use
  Company Number: FLUV00304001526

PATIENT
  Age: 65 Year
  Sex: Male

DRUGS (9)
  1. FLUVOXAMINE MALEATE [Suspect]
     Indication: DEPRESSION
     Dosage: 50 MG DAILY PO,  DAILY PO
     Route: 048
     Dates: start: 20030820, end: 20030101
  2. FLUVOXAMINE MALEATE [Suspect]
     Indication: DEPRESSION
     Dosage: 50 MG DAILY PO,  DAILY PO
     Route: 048
     Dates: start: 20030101, end: 20031216
  3. SEDIEL (TANDOSPIRONE CITRATE) [Suspect]
     Indication: ANXIETY
     Dosage: 90 MG DAILY PO
     Route: 048
     Dates: start: 20030820, end: 20031127
  4. SEDIEL (TANDOSPIRONE CITRATE) [Suspect]
     Indication: DEPRESSION
     Dosage: 90 MG DAILY PO
     Route: 048
     Dates: start: 20030820, end: 20031127
  5. TRAZODONE HCL [Concomitant]
  6. DEPAS (ETIZOLAM) [Concomitant]
  7. AMOBAN (ZOPICLONE) [Concomitant]
  8. EVAMYL (LORMETAZEPAM) [Concomitant]
  9. DOGMATYL (SULPIRIDE) [Concomitant]

REACTIONS (12)
  - ABDOMINAL DISCOMFORT [None]
  - BODY TEMPERATURE INCREASED [None]
  - CIRCULATORY COLLAPSE [None]
  - FATIGUE [None]
  - FEELING ABNORMAL [None]
  - HAEMODYNAMIC TEST ABNORMAL [None]
  - HOT FLUSH [None]
  - HYPERHIDROSIS [None]
  - JOINT ANKYLOSIS [None]
  - NAUSEA [None]
  - SEROTONIN SYNDROME [None]
  - TREATMENT NONCOMPLIANCE [None]
